FAERS Safety Report 8717948 (Version 2)
Quarter: 2012Q4

REPORT INFORMATION
  Report Type: Report from Study
  Country: AU (occurrence: AU)
  Receive Date: 20120810
  Receipt Date: 20121206
  Transmission Date: 20130627
  Serious: Yes (Death, Hospitalization, Other)
  Sender: FDA-Public Use
  Company Number: AU-ROCHE-1099255

PATIENT
  Age: 98 Year
  Sex: Female

DRUGS (5)
  1. METHOXY POLYETHYLENE GLYCOL-EPOETIN BETA [Suspect]
     Indication: RENAL FAILURE CHRONIC
     Route: 058
     Dates: start: 20111103, end: 20120726
  2. GABAPENTIN [Concomitant]
     Route: 065
  3. HALOPERIDOL [Concomitant]
     Route: 065
  4. NILSTAT [Concomitant]
     Route: 065
  5. FENTANYL [Concomitant]
     Route: 065

REACTIONS (6)
  - Death [Fatal]
  - Renal failure chronic [Unknown]
  - Renal impairment [Unknown]
  - Confusional state [Unknown]
  - Nausea [Unknown]
  - Pruritus [Unknown]
